FAERS Safety Report 7765338-9 (Version None)
Quarter: 2011Q3

REPORT INFORMATION
  Report Type: 
  Country: None (occurrence: None)
  Receive Date: 20110921
  Receipt Date: 20110907
  Transmission Date: 20111222
  Serious: Yes (Other)
  Sender: FDA-Public Use
  Company Number: US-BAYER-2011-084421

PATIENT
  Age: 42 Year
  Sex: Male
  Weight: 115 kg

DRUGS (4)
  1. ASPIRIN [Concomitant]
  2. DIOVAN [Concomitant]
  3. ALEVE (CAPLET) [Suspect]
     Indication: ARTHRITIS
     Dosage: 3 DF, BID
     Route: 048
     Dates: start: 20050101, end: 20110518
  4. METOPROLOL TARTRATE [Concomitant]

REACTIONS (2)
  - RENAL CANCER [None]
  - NEPHRECTOMY [None]
